FAERS Safety Report 14130916 (Version 1)
Quarter: 2017Q4

REPORT INFORMATION
  Report Type: Report from Study
  Country: AU (occurrence: AU)
  Receive Date: 20171026
  Receipt Date: 20171026
  Transmission Date: 20180321
  Serious: Yes (Death, Other)
  Sender: FDA-Public Use
  Company Number: AU-CELGENEUS-AUS-20171005764

PATIENT

DRUGS (2)
  1. AZACITIDINE. [Suspect]
     Active Substance: AZACITIDINE
     Indication: ACUTE MYELOID LEUKAEMIA
     Dosage: 75 MILLIGRAM/SQ. METER
     Route: 058
  2. EVEROLIMUS. [Concomitant]
     Active Substance: EVEROLIMUS
     Indication: ACUTE MYELOID LEUKAEMIA
     Route: 065

REACTIONS (27)
  - Oropharyngeal pain [Unknown]
  - Blood creatinine increased [Unknown]
  - Rash [Unknown]
  - Sepsis [Unknown]
  - Anaemia [Unknown]
  - Toothache [Unknown]
  - Dyspnoea [Unknown]
  - Metastatic malignant melanoma [Fatal]
  - Liver function test abnormal [Fatal]
  - Diarrhoea [Unknown]
  - Fatigue [Unknown]
  - Pain [Unknown]
  - Disease progression [Fatal]
  - Mucosal inflammation [Unknown]
  - Arthritis bacterial [Unknown]
  - Infection [Fatal]
  - Thrombocytopenia [Unknown]
  - Decreased appetite [Unknown]
  - Liver function test abnormal [Unknown]
  - Osteoporosis [Unknown]
  - Febrile neutropenia [Unknown]
  - Neutropenia [Unknown]
  - Injection site reaction [Unknown]
  - Haemorrhage [Unknown]
  - Cough [Unknown]
  - Nausea [Unknown]
  - Pyrexia [Unknown]
